FAERS Safety Report 5871776-1 (Version None)
Quarter: 2008Q3

REPORT INFORMATION
  Report Type: 
  Country: None (occurrence: None)
  Receive Date: 20080905
  Receipt Date: 20080826
  Transmission Date: 20090109
  Serious: Yes (Other)
  Sender: FDA-Public Use
  Company Number: US-ROCHE-582853

PATIENT
  Sex: Female
  Weight: 86.6 kg

DRUGS (8)
  1. VESANOID [Suspect]
     Indication: ACUTE PROMYELOCYTIC LEUKAEMIA
     Route: 065
     Dates: start: 20080523, end: 20080630
  2. TRISENOX [Suspect]
     Indication: ACUTE PROMYELOCYTIC LEUKAEMIA
     Dosage: FORM REPORTED AS: INTRAVENOUS DRIP
     Route: 042
     Dates: start: 20080623
  3. TRISENOX [Suspect]
     Dosage: DOSE REDUCED TO HALF
     Route: 042
  4. TRISENOX [Suspect]
     Dosage: DOSE INCREASED TO FULL
     Route: 042
  5. ZOFRAN [Concomitant]
  6. POTASSIUM CHLORIDE [Concomitant]
  7. MAGNESIUM OXIDE [Concomitant]
  8. DILAUDID [Concomitant]

REACTIONS (3)
  - ABDOMINAL PAIN [None]
  - ALANINE AMINOTRANSFERASE INCREASED [None]
  - ASPARTATE AMINOTRANSFERASE INCREASED [None]
